FAERS Safety Report 7365091-7 (Version None)
Quarter: 2011Q1

REPORT INFORMATION
  Report Type: 
  Country: None (occurrence: None)
  Receive Date: 20110321
  Receipt Date: 20110311
  Transmission Date: 20110831
  Serious: Yes (Other)
  Sender: FDA-Public Use
  Company Number: US-ALLERGAN-1103470US

PATIENT
  Sex: Female

DRUGS (1)
  1. OZURDEX [Suspect]
     Indication: CYSTOID MACULAR OEDEMA
     Dosage: UNK
     Route: 031
     Dates: start: 20110201, end: 20110201

REACTIONS (3)
  - EYE SWELLING [None]
  - DEVICE DISLOCATION [None]
  - EYE PAIN [None]
